FAERS Safety Report 5191531-8 (Version None)
Quarter: 2006Q4

REPORT INFORMATION
  Report Type: 
  Country: None (occurrence: None)
  Receive Date: 20061219
  Receipt Date: 20061219
  Transmission Date: 20070319
  Serious: Yes (Hospitalization)
  Sender: FDA-Public Use
  Company Number: None

PATIENT
  Age: 60 Year
  Sex: Female

DRUGS (1)
  1. BYETTA [Suspect]
     Indication: DIABETES MELLITUS NON-INSULIN-DEPENDENT
     Dosage: 10 MCG SUBCUTANEOUSLY TWICE DAILY WITH MEALS
     Route: 058
     Dates: start: 20050801

REACTIONS (5)
  - BLOOD GLUCOSE DECREASED [None]
  - DEHYDRATION [None]
  - DEVICE MALFUNCTION [None]
  - HYPOTENSION [None]
  - INCORRECT DOSE ADMINISTERED [None]
